FAERS Safety Report 6999716-2 (Version None)
Quarter: 2010Q3

REPORT INFORMATION
  Report Type: 
  Country: None (occurrence: None)
  Receive Date: 20100920
  Receipt Date: 20091230
  Transmission Date: 20110219
  Serious: No
  Sender: FDA-Public Use
  Company Number: US-ASTRAZENECA-2009UW21097

PATIENT
  Age: 42 Year
  Sex: Female
  Weight: 104.3 kg

DRUGS (7)
  1. SEROQUEL [Suspect]
     Indication: BIPOLAR DISORDER
     Route: 048
     Dates: start: 19980101, end: 20080901
  2. ABILIFY [Concomitant]
     Dates: start: 19900101
  3. HALDOL [Concomitant]
     Dates: start: 19900101
  4. RISPERDAL [Concomitant]
     Dates: start: 19900101
  5. THORAZINE [Concomitant]
     Dates: start: 19900101
  6. ZYPREXA [Concomitant]
     Dates: start: 19900101
  7. SYMBYAX [Concomitant]
     Dates: start: 19900101

REACTIONS (4)
  - BLOOD CHOLESTEROL INCREASED [None]
  - BLOOD TRIGLYCERIDES INCREASED [None]
  - OBESITY [None]
  - TYPE 2 DIABETES MELLITUS [None]
